FAERS Safety Report 10914634 (Version 2)
Quarter: 2015Q1

REPORT INFORMATION
  Report Type: Spontaneous
  Country: TN (occurrence: TN)
  Receive Date: 20150313
  Receipt Date: 20150320
  Transmission Date: 20150721
  Serious: Yes (Life-Threatening, Other)
  Sender: FDA-Public Use
  Company Number: TN-GLAXOSMITHKLINE-TN2015GSK032276

PATIENT
  Age: 62 Year
  Sex: Female

DRUGS (4)
  1. OROKEN [Concomitant]
     Active Substance: CEFIXIME
  2. AVAMYS [Suspect]
     Active Substance: FLUTICASONE FUROATE
     Indication: RHINITIS ALLERGIC
     Dosage: UNK
     Route: 045
  3. DESTOLIT [Concomitant]
     Dosage: UNK
  4. DESTOR [Concomitant]
     Dosage: UNK

REACTIONS (1)
  - Urticaria [Recovered/Resolved]
